FAERS Safety Report 20602227 (Version 2)
Quarter: 2022Q1

REPORT INFORMATION
  Report Type: Report from Study
  Country: FR (occurrence: FR)
  Receive Date: 20220316
  Receipt Date: 20220321
  Transmission Date: 20220423
  Serious: Yes (Other)
  Sender: FDA-Public Use
  Company Number: FR-GILEAD-2022-0564184

PATIENT
  Age: 52 Year
  Sex: Female
  Weight: 50 kg

DRUGS (9)
  1. SACITUZUMAB GOVITECAN [Suspect]
     Active Substance: SACITUZUMAB GOVITECAN
     Indication: Triple negative breast cancer
     Dosage: 10 MG/KG
     Route: 042
     Dates: start: 20211213
  2. SACITUZUMAB GOVITECAN [Suspect]
     Active Substance: SACITUZUMAB GOVITECAN
     Dosage: UNK
     Route: 042
     Dates: start: 20211220
  3. SACITUZUMAB GOVITECAN [Suspect]
     Active Substance: SACITUZUMAB GOVITECAN
     Dosage: 10 MG/KG, CYCLE 2 DAYS 1 AND 8
     Route: 042
     Dates: start: 20220106, end: 20220113
  4. SACITUZUMAB GOVITECAN [Suspect]
     Active Substance: SACITUZUMAB GOVITECAN
     Dosage: 10 MG/KG C3 D1; DAY 8 OF CYCLE 3 WAS CANCELLED
     Route: 042
     Dates: start: 20220127, end: 20220203
  5. CARBIMAZOLE [Concomitant]
     Active Substance: CARBIMAZOLE
  6. INSPRA [MONTELUKAST SODIUM] [Concomitant]
  7. BISOPROLOL [Concomitant]
     Active Substance: BISOPROLOL
  8. XARELTO [Concomitant]
     Active Substance: RIVAROXABAN
  9. ZOPICLONE [Concomitant]
     Active Substance: ZOPICLONE
     Dosage: UNK
     Dates: start: 202001

REACTIONS (4)
  - Drug ineffective [Unknown]
  - Disease progression [Unknown]
  - Rash erythematous [Recovered/Resolved]
  - Pruritus [Recovered/Resolved]

NARRATIVE: CASE EVENT DATE: 20211215
